FAERS Safety Report 5989567-X (Version None)
Quarter: 2008Q4

REPORT INFORMATION
  Report Type: 
  Country: None (occurrence: None)
  Receive Date: 20081208
  Receipt Date: 20081125
  Transmission Date: 20090506
  Serious: Yes (Hospitalization)
  Sender: FDA-Public Use
  Company Number: 231825K08USA

PATIENT
  Age: 38 Year
  Sex: Female
  Weight: 128 kg

DRUGS (4)
  1. REBIF [Suspect]
     Indication: MULTIPLE SCLEROSIS
     Dosage: 44 MCG, 3 IN 1 WEEKS, SUBCUTANEOUS
     Route: 058
     Dates: start: 20060607
  2. ATENOLOL [Concomitant]
  3. HYDROCHLOROTHIAZIDE (HYDROCHOROTHIAZIDE) [Concomitant]
  4. SYNTHROID [Concomitant]

REACTIONS (12)
  - ASTHENIA [None]
  - BALANCE DISORDER [None]
  - DIZZINESS [None]
  - HAEMATOCRIT DECREASED [None]
  - HAEMOGLOBIN DECREASED [None]
  - HEADACHE [None]
  - HYPOAESTHESIA [None]
  - MUSCLE STRAIN [None]
  - MUSCLE TIGHTNESS [None]
  - PAIN [None]
  - PYREXIA [None]
  - UTERINE LEIOMYOMA [None]
